FAERS Safety Report 8990757 (Version 1)
Quarter: 2012Q4

REPORT INFORMATION
  Report Type: Spontaneous
  Country: US (occurrence: None)
  Receive Date: 20121226
  Receipt Date: 20121226
  Transmission Date: 20130627
  Serious: Yes (Life-Threatening, Hospitalization)
  Sender: FDA-Public Use
  Company Number: None

PATIENT
  Age: 88 Year
  Sex: Male
  Weight: 90.6 kg

DRUGS (2)
  1. WARFARIN [Suspect]
     Dosage: 2 MG EVERY DAY PO
     Route: 048
     Dates: start: 20070629, end: 20121119
  2. ASPIRIN [Suspect]
     Dosage: 325 MG EVERY DAY PO
     Route: 048
     Dates: start: 19970617, end: 20121123

REACTIONS (4)
  - Fall [None]
  - Head injury [None]
  - Haematemesis [None]
  - Haemorrhage intracranial [None]
